FAERS Safety Report 19746931 (Version 1)
Quarter: 2021Q3

REPORT INFORMATION
  Report Type: Spontaneous
  Country: US (occurrence: US)
  Receive Date: 20210826
  Receipt Date: 20210826
  Transmission Date: 20211014
  Serious: Yes (Hospitalization, Other)
  Sender: FDA-Public Use
  Company Number: US-HIKMA PHARMACEUTICALS USA INC.-US-H14001-21-03680

PATIENT
  Age: 61 Year
  Sex: Male
  Weight: 110.7 kg

DRUGS (4)
  1. LEUCOVORIN. [Suspect]
     Active Substance: LEUCOVORIN
     Indication: PANCREATIC CARCINOMA
     Route: 042
     Dates: start: 20210630, end: 20210716
  2. NANOLIPOSOMAL IRINOTECAN [Suspect]
     Active Substance: IRINOTECAN
     Indication: PANCREATIC CARCINOMA
     Route: 042
     Dates: start: 20210630, end: 20210716
  3. FLUOROURACIL. [Suspect]
     Active Substance: FLUOROURACIL
     Indication: PANCREATIC CARCINOMA
     Route: 042
     Dates: start: 20210630, end: 20210716
  4. OXALIPLATIN. [Suspect]
     Active Substance: OXALIPLATIN
     Indication: PANCREATIC CARCINOMA
     Route: 042
     Dates: start: 20210630, end: 20210716

REACTIONS (12)
  - Diarrhoea [Unknown]
  - Haemorrhage [Unknown]
  - Klebsiella infection [Unknown]
  - Dehydration [Unknown]
  - Gastrointestinal disorder [Unknown]
  - Abdominal pain [Unknown]
  - Clostridium difficile infection [Recovered/Resolved with Sequelae]
  - Condition aggravated [Unknown]
  - Enterocolitis infectious [Recovered/Resolved with Sequelae]
  - Hypotension [Recovered/Resolved]
  - Candida infection [Unknown]
  - Acute kidney injury [Unknown]

NARRATIVE: CASE EVENT DATE: 20210705
